FAERS Safety Report 22660563 (Version 1)
Quarter: 2023Q2

REPORT INFORMATION
  Report Type: Spontaneous
  Country: FR (occurrence: FR)
  Receive Date: 20230630
  Receipt Date: 20230630
  Transmission Date: 20230722
  Serious: No
  Sender: FDA-Public Use
  Company Number: FR-JAZZ PHARMACEUTICALS-2021-FR-027591

PATIENT
  Age: 36 Year
  Sex: Female
  Weight: 66 kg

DRUGS (8)
  1. CANNABIDIOL [Suspect]
     Active Substance: CANNABIDIOL
     Indication: Lennox-Gastaut syndrome
     Dosage: 80 MILLIGRAM, QD
     Route: 048
     Dates: start: 20210519
  2. PHENYTOIN [Concomitant]
     Active Substance: PHENYTOIN
  3. DESOGESTREL [Concomitant]
     Active Substance: DESOGESTREL
  4. RIVOTRIL [Concomitant]
     Active Substance: CLONAZEPAM
  5. LAMOTRIGINE [Concomitant]
     Active Substance: LAMOTRIGINE
  6. ACETAMINOPHEN [Concomitant]
     Active Substance: ACETAMINOPHEN
  7. INOVELON [Concomitant]
     Active Substance: RUFINAMIDE
  8. VALPROATE SODIUM [Concomitant]
     Active Substance: VALPROATE SODIUM

REACTIONS (1)
  - Behaviour disorder [Not Recovered/Not Resolved]

NARRATIVE: CASE EVENT DATE: 20210521
